FAERS Safety Report 6820685-X (Version None)
Quarter: 2010Q3

REPORT INFORMATION
  Report Type: 
  Country: None (occurrence: None)
  Receive Date: 20100707
  Receipt Date: 20100623
  Transmission Date: 20110219
  Serious: Yes (Hospitalization)
  Sender: FDA-Public Use
  Company Number: DE-ELI_LILLY_AND_COMPANY-DE201006006321

PATIENT
  Age: 26 Year
  Sex: Male

DRUGS (7)
  1. ZYPREXA [Suspect]
     Dosage: 7.5 MG, DAILY (1/D)
     Route: 048
     Dates: start: 20090820, end: 20090825
  2. ZYPREXA [Suspect]
     Dosage: 5 MG, DAILY (1/D)
     Route: 048
     Dates: start: 20090826, end: 20090827
  3. ZYPREXA [Suspect]
     Dosage: 2.5 MG, DAILY (1/D)
     Route: 048
     Dates: start: 20090828, end: 20090831
  4. FLUANXOL /00109702/ [Concomitant]
     Dosage: 3 MG, DAILY (1/D)
     Route: 048
     Dates: start: 20090703, end: 20090819
  5. FLUANXOL /00109702/ [Concomitant]
     Dosage: 4 MG, DAILY (1/D)
     Route: 048
     Dates: start: 20090820, end: 20090827
  6. FLUANXOL /00109702/ [Concomitant]
     Dosage: 3 MG, DAILY (1/D)
     Route: 048
     Dates: start: 20090828, end: 20090830
  7. FLUANXOL DEPOT [Concomitant]
     Dosage: 20 MG, 2/W
     Route: 030
     Dates: start: 20090826

REACTIONS (1)
  - DYSKINESIA [None]
